FAERS Safety Report 6195248-2 (Version None)
Quarter: 2009Q2

REPORT INFORMATION
  Report Type: 
  Country: None (occurrence: None)
  Receive Date: 20090519
  Receipt Date: 20090511
  Transmission Date: 20091009
  Serious: Yes (Hospitalization, Other)
  Sender: FDA-Public Use
  Company Number: US-ELI_LILLY_AND_COMPANY-US200905001946

PATIENT
  Sex: Female

DRUGS (25)
  1. HUMULIN R [Suspect]
     Route: 058
  2. HUMULIN 70/30 [Suspect]
  3. HUMULIN N [Suspect]
  4. HUMALOG [Suspect]
  5. HUMULIN R [Suspect]
  6. CIPRO [Concomitant]
  7. ACTOS [Concomitant]
  8. ADVAIR HFA [Concomitant]
  9. NORVASC [Concomitant]
  10. CATAPRES /USA/ [Concomitant]
  11. CLONIDINE [Concomitant]
  12. CREON [Concomitant]
  13. DARVOCET [Concomitant]
  14. DIOVAN [Concomitant]
  15. FLONASE [Concomitant]
  16. FOLIC ACID [Concomitant]
  17. LASIX [Concomitant]
  18. NEURONTIN [Concomitant]
     Indication: NEUROPATHY PERIPHERAL
  19. PROTONIX [Concomitant]
  20. SINGULAIR [Concomitant]
  21. VYTORIN [Concomitant]
  22. XANAX [Concomitant]
  23. ZOLOFT [Concomitant]
  24. LANTUS [Concomitant]
  25. CALCITRIOL [Concomitant]
     Indication: BLOOD PARATHYROID HORMONE INCREASED

REACTIONS (23)
  - ANEURYSM [None]
  - ASTIGMATISM [None]
  - BLOOD GROWTH HORMONE DECREASED [None]
  - BLOOD PARATHYROID HORMONE INCREASED [None]
  - CATARACT [None]
  - DRY SKIN [None]
  - FRACTURE [None]
  - FRUSTRATION [None]
  - IMPAIRED GASTRIC EMPTYING [None]
  - INTERVERTEBRAL DISC PROTRUSION [None]
  - LOCALISED INFECTION [None]
  - NEPHROPATHY [None]
  - NEUROPATHY PERIPHERAL [None]
  - OSTEOMYELITIS [None]
  - PAIN [None]
  - PAIN IN EXTREMITY [None]
  - PANCREATITIS CHRONIC [None]
  - RETINOPATHY [None]
  - SCIATICA [None]
  - SKIN LACERATION [None]
  - SWELLING [None]
  - THROMBOSIS [None]
  - VISUAL ACUITY REDUCED [None]
